FAERS Safety Report 24594813 (Version 1)
Quarter: 2024Q4

REPORT INFORMATION
  Report Type: Spontaneous
  Country: US (occurrence: US)
  Receive Date: 20241108
  Receipt Date: 20241108
  Transmission Date: 20250115
  Serious: No
  Sender: MYLAN
  Company Number: US-MYLANLABS-2024M1099575

PATIENT
  Sex: Female

DRUGS (2)
  1. LATANOPROST [Suspect]
     Active Substance: LATANOPROST
     Indication: Glaucoma
     Dosage: 1 GTT DROPS, QD(PER DAY)
     Route: 047
     Dates: start: 2024
  2. LATANOPROST [Suspect]
     Active Substance: LATANOPROST
     Dosage: 1 GTT DROPS, QD(PER DAY)
     Route: 047
     Dates: start: 2024

REACTIONS (2)
  - Accidental exposure to product [Unknown]
  - Device delivery system issue [Unknown]

NARRATIVE: CASE EVENT DATE: 20240101
